FAERS Safety Report 21119018 (Version 1)
Quarter: 2022Q3

REPORT INFORMATION
  Report Type: Report from Study
  Country: EG (occurrence: EG)
  Receive Date: 20220722
  Receipt Date: 20220722
  Transmission Date: 20221026
  Serious: Yes (Other)
  Sender: FDA-Public Use
  Company Number: EG-NOVARTISPH-NVSC2022EG164012

PATIENT
  Sex: Male

DRUGS (11)
  1. GLIVEC [Suspect]
     Active Substance: IMATINIB MESYLATE
     Indication: Chronic myeloid leukaemia
     Dosage: 400 MG
     Route: 048
  2. GLIVEC [Suspect]
     Active Substance: IMATINIB MESYLATE
     Dosage: 800 MG
     Route: 048
     Dates: end: 202106
  3. GLIVEC [Suspect]
     Active Substance: IMATINIB MESYLATE
     Dosage: 400 MG, QD (4 CAPS/DAY)
     Route: 048
  4. FUROSEMIDE\SPIRONOLACTONE [Concomitant]
     Active Substance: FUROSEMIDE\SPIRONOLACTONE
     Indication: Diuretic therapy
     Dosage: 1 DOSAGE FORM, QD (ONE TAB/DAY)
     Route: 048
     Dates: start: 20220714
  5. ACTRAPID INSULIN NOVO [Concomitant]
     Indication: Diabetes mellitus
     Dosage: UNK UNK, TID (18 UNITS, 3 TIMES/DAY)
     Route: 058
  6. RIVAROSPIRE [Concomitant]
     Indication: Anticoagulant therapy
     Dosage: 1 DOSAGE FORM, QD (ONE TAB/DAY.)
     Route: 048
     Dates: start: 202106
  7. RIVAROSPIRE [Concomitant]
     Dosage: 1 DOSAGE FORM, QD (ONE TAB/DAY)
     Route: 048
     Dates: start: 20220713, end: 20220715
  8. VASTAREL [Concomitant]
     Active Substance: TRIMETAZIDINE DIHYDROCHLORIDE
     Indication: Cardiac disorder
     Dosage: 1 DOSAGE FORM, QD (ONE TAB/DAY)
     Route: 048
     Dates: start: 202106
  9. NITRO MAK RETARD [Concomitant]
     Indication: Cardiac disorder
     Dosage: 1 DOSAGE FORM, QD (ONE TAB/DAY)
     Route: 048
     Dates: start: 202106
  10. AMBIZOLE PLUS [Concomitant]
     Indication: Abdominal pain upper
     Dosage: 1 DOSAGE FORM, QD (ONE TAB/DAY)
     Route: 048
     Dates: end: 20220715
  11. OMEPRAZOLE [Concomitant]
     Active Substance: OMEPRAZOLE
     Indication: Abdominal pain upper
     Dosage: 1 DOSAGE FORM, QD (ONE TAB/DAY)
     Route: 048
     Dates: start: 20220716

REACTIONS (21)
  - COVID-19 [Recovered/Resolved]
  - Pyrexia [Recovered/Resolved]
  - Cough [Recovered/Resolved]
  - Dyspnoea [Recovered/Resolved]
  - Fibrin D dimer increased [Recovered/Resolved]
  - Pyrexia [Recovered/Resolved]
  - Urine flow decreased [Recovering/Resolving]
  - Dysuria [Recovering/Resolving]
  - Bronchitis [Recovered/Resolved]
  - Nasopharyngitis [Recovered/Resolved]
  - Cough [Recovered/Resolved]
  - Eye haemorrhage [Not Recovered/Not Resolved]
  - Prostatomegaly [Recovering/Resolving]
  - Cystitis noninfective [Recovering/Resolving]
  - Blood creatinine increased [Unknown]
  - Blood pressure increased [Recovering/Resolving]
  - Blood glucose increased [Unknown]
  - Chills [Recovering/Resolving]
  - Cough [Recovered/Resolved]
  - Chills [Recovered/Resolved]
  - Product dose omission issue [Recovered/Resolved]

NARRATIVE: CASE EVENT DATE: 20170101
